FAERS Safety Report 8439110-0 (Version None)
Quarter: 2012Q2

REPORT INFORMATION
  Report Type: 
  Country: None (occurrence: None)
  Receive Date: 20120607
  Receipt Date: 20120530
  Transmission Date: 20120825
  Serious: Yes (Disabling)
  Sender: FDA-Public Use
  Company Number: 2012SP029470

PATIENT
  Age: 50 Year
  Sex: Male
  Weight: 96 kg

DRUGS (9)
  1. PROCTOSEDYL [Concomitant]
  2. CROMOLYN SODIUM [Concomitant]
  3. AMLODIPINE [Concomitant]
  4. MONTELUKAST [Concomitant]
  5. MIRTAZAPINE [Suspect]
     Indication: PRODUCT USED FOR UNKNOWN INDICATION
     Dosage: 15 MG
     Dates: start: 20120501
  6. ATORVASTATIN CALCIUM [Concomitant]
  7. LOSARTAN POTASSIUM [Concomitant]
  8. BENDROFLUMETHIAZIDE [Concomitant]
  9. FLUTICASONE PROPIONATE/SALMETEROL [Concomitant]

REACTIONS (4)
  - ALANINE AMINOTRANSFERASE ABNORMAL [None]
  - BLOOD TRIGLYCERIDES INCREASED [None]
  - MYALGIA [None]
  - ARTHRALGIA [None]
